FAERS Safety Report 7317402-6 (Version None)
Quarter: 2011Q1

REPORT INFORMATION
  Report Type: 
  Country: None (occurrence: None)
  Receive Date: 20110226
  Receipt Date: 20101208
  Transmission Date: 20110831
  Serious: Yes (Other)
  Sender: FDA-Public Use
  Company Number: US-ALLERGAN-1013827US

PATIENT
  Age: 66 Year
  Sex: Male
  Weight: 85.261 kg

DRUGS (14)
  1. GLIPIZIDE [Concomitant]
     Dosage: 5 MG, BID
     Route: 048
  2. PREVACID [Concomitant]
     Dosage: 15 MG, QD
     Route: 048
  3. IBUPROFEN [Concomitant]
     Indication: ARTHRALGIA
     Dosage: UNK
     Route: 048
  4. LEVETIRACETAM [Concomitant]
     Indication: CONVULSION
     Dosage: 750 MG, BID
  5. CARVEDILOL [Concomitant]
     Dosage: 3.125 MG, BID
     Route: 048
  6. HUMULIN R [Concomitant]
  7. BOTOXA? [Suspect]
     Indication: CEREBROVASCULAR ACCIDENT
     Dosage: 600 UNITS, SINGLE
     Dates: start: 20100604, end: 20100604
  8. CELEXA [Concomitant]
     Dosage: 10 MG, QD
     Route: 048
  9. NYSTATIN [Concomitant]
     Dosage: UNK
     Route: 061
  10. TRIAMCINOLONE [Concomitant]
     Dosage: UNK
     Route: 061
  11. ASA [Concomitant]
     Dosage: 81 MG, QD
     Route: 048
  12. BOTOXA? [Suspect]
     Indication: MUSCLE SPASTICITY
     Dosage: 700 UNITS, SINGLE
     Route: 030
     Dates: start: 20100915, end: 20100915
  13. RAMIPRIL [Concomitant]
     Dosage: 10 MG, QD
     Route: 048
  14. CIPRO [Concomitant]
     Dosage: UNK
     Route: 047

REACTIONS (4)
  - HYPOAESTHESIA [None]
  - HEADACHE [None]
  - PYREXIA [None]
  - CONVULSION [None]
